FAERS Safety Report 10978557 (Version 1)
Quarter: 2015Q2

REPORT INFORMATION
  Report Type: Spontaneous
  Country: DK (occurrence: DK)
  Receive Date: 20150402
  Receipt Date: 20150402
  Transmission Date: 20150821
  Serious: Yes (Hospitalization)
  Sender: FDA-Public Use
  Company Number: DK-TEVA-550351ISR

PATIENT
  Age: 36 Year
  Sex: Male

DRUGS (13)
  1. DERMOVAT [Concomitant]
     Active Substance: CLOBETASOL
     Indication: ECZEMA
     Route: 003
     Dates: start: 20140813
  2. SYMBICORT FORTE TURBOHALER [Concomitant]
     Indication: ASTHMA
     Dosage: STRENGTH: 9+320 MICROG/DOSIS
     Route: 055
     Dates: start: 20140609
  3. BRICANYL [Concomitant]
     Active Substance: TERBUTALINE SULFATE
     Indication: BRONCHOSPASM
     Dates: start: 20080213
  4. CETIRIZINE [Concomitant]
     Active Substance: CETIRIZINE HYDROCHLORIDE
     Indication: PRURITUS
     Route: 048
     Dates: start: 20140312
  5. METHOTREXATE (METHOTREXATE SODIUM) [Suspect]
     Active Substance: METHOTREXATE SODIUM
     Indication: DERMATITIS ATOPIC
     Dosage: STRENGTH: 2.5 MG.
     Route: 048
     Dates: start: 20150227, end: 20150304
  6. OXIS TURBOHALER [Concomitant]
     Indication: BRONCHOSPASM
     Route: 055
     Dates: start: 20080213
  7. ELOCON [Concomitant]
     Active Substance: MOMETASONE FUROATE
     Indication: ECZEMA
     Dosage: STRENGTH: 0.1 %.
     Route: 003
     Dates: start: 20140114
  8. FUCIBET [Concomitant]
     Indication: ECZEMA INFECTED
     Dosage: STRENGTH:1 + 20 MG/G
     Route: 003
     Dates: start: 20140203
  9. FOLIMET [Concomitant]
     Indication: VITAMIN SUPPLEMENTATION
     Route: 048
     Dates: start: 20150227
  10. LOCOID [Concomitant]
     Active Substance: HYDROCORTISONE BUTYRATE
     Indication: ECZEMA
     Dosage: STRENGTH: 0.1 %.
     Route: 003
     Dates: start: 20140203
  11. PROTOPIC [Concomitant]
     Active Substance: TACROLIMUS
     Indication: ECZEMA
     Route: 003
     Dates: start: 20140904
  12. BETNOVAT [Concomitant]
     Active Substance: BETAMETHASONE
     Indication: ECZEMA
     Route: 003
     Dates: start: 20150224
  13. KETOCONAZOLE SHAMPOO ^ACTAVIS^ 2 % [Concomitant]
     Indication: DANDRUFF
     Dosage: STRENGTH: 2 % (20 MG/G).
     Dates: start: 20150224

REACTIONS (9)
  - Feeling hot [Unknown]
  - Headache [Unknown]
  - Chills [Unknown]
  - Photophobia [Unknown]
  - Somnolence [Unknown]
  - Mental impairment [Unknown]
  - Dissociation [Unknown]
  - Somnolence [Unknown]
  - Fatigue [Unknown]

NARRATIVE: CASE EVENT DATE: 20150301
